FAERS Safety Report 6111832-6 (Version None)
Quarter: 2009Q1

REPORT INFORMATION
  Report Type: 
  Country: None (occurrence: None)
  Receive Date: 20090311
  Receipt Date: 20081228
  Transmission Date: 20090719
  Serious: Yes (Hospitalization, Other)
  Sender: FDA-Public Use
  Company Number: GR-PFIZER INC-2008095481

PATIENT

DRUGS (4)
  1. SUNITINIB MALATE [Suspect]
     Indication: RENAL CANCER
     Dosage: 50 MG 1X DAY
     Route: 048
     Dates: start: 20080920, end: 20080927
  2. ADALAT CC [Concomitant]
     Dosage: 60 MG, 1X/DAY
     Route: 048
  3. FISIOTENS [Concomitant]
     Dosage: 0.2 MG, 1X/DAY
     Route: 048
  4. LASIX [Concomitant]
     Dosage: 40 MG, 1X/DAY
     Route: 048

REACTIONS (1)
  - HAEMORRHAGIC ASCITES [None]
